FAERS Safety Report 21474563 (Version 1)
Quarter: 2022Q4

REPORT INFORMATION
  Report Type: Spontaneous
  Country: US (occurrence: US)
  Receive Date: 20221018
  Receipt Date: 20221018
  Transmission Date: 20230113
  Serious: No
  Sender: FDA-Public Use
  Company Number: US-CELLTRION INC.-2021US013100

PATIENT

DRUGS (2)
  1. INFLECTRA [Suspect]
     Active Substance: INFLIXIMAB-DYYB
     Indication: Colitis ulcerative
     Dosage: 10 MG/KG ON WEEKS 2,6 THEN EVERY 8 WEEKS
     Route: 065
     Dates: start: 201806
  2. INFLECTRA [Suspect]
     Active Substance: INFLIXIMAB-DYYB
     Dosage: FREQUENCY:WEEK 2, 6 LOAD DOSE THEN Q 8WKS MAINT
     Route: 065

REACTIONS (5)
  - Adverse drug reaction [Unknown]
  - Therapy cessation [Unknown]
  - Overdose [Unknown]
  - Product dose omission issue [Unknown]
  - Product distribution issue [Unknown]
